FAERS Safety Report 11864277 (Version 1)
Quarter: 2015Q4

REPORT INFORMATION
  Report Type: Spontaneous
  Country: AT (occurrence: AT)
  Receive Date: 20151223
  Receipt Date: 20151223
  Transmission Date: 20160305
  Serious: Yes (Other)
  Sender: FDA-Public Use
  Company Number: AT-JNJFOC-20151211030

PATIENT
  Age: 87 Year
  Sex: Male
  Weight: 88 kg

DRUGS (12)
  1. FINASTERID [Concomitant]
  2. ALLOPURINOL. [Concomitant]
     Active Substance: ALLOPURINOL
     Dosage: ON MONDAY,WEDNESDAY AND FRIDAY
  3. BACTRIM [Concomitant]
     Active Substance: SULFAMETHOXAZOLE\TRIMETHOPRIM
     Dosage: ONCE IN MORNING ON MONDAY,WEDNESDAY AND FRIDAY
  4. VIROPEL [Concomitant]
  5. TAMSULOSIN [Concomitant]
     Active Substance: TAMSULOSIN
  6. OLEOVIT-D3 [Concomitant]
  7. CONCOR [Concomitant]
     Active Substance: BISOPROLOL FUMARATE
  8. THROMBO ASS [Concomitant]
     Active Substance: ASPIRIN
  9. FOLSAN [Concomitant]
     Active Substance: FOLIC ACID
  10. NEURONTIN [Concomitant]
     Active Substance: GABAPENTIN
  11. THYREX [Concomitant]
     Active Substance: LEVOTHYROXINE SODIUM
  12. IBRUTINIB [Suspect]
     Active Substance: IBRUTINIB
     Indication: CHRONIC LYMPHOCYTIC LEUKAEMIA
     Route: 048
     Dates: start: 201501

REACTIONS (1)
  - Tooth loss [Not Recovered/Not Resolved]

NARRATIVE: CASE EVENT DATE: 201512
